FAERS Safety Report 13960897 (Version 1)
Quarter: 2017Q3

REPORT INFORMATION
  Report Type: Spontaneous
  Country: DE (occurrence: DE)
  Receive Date: 20170912
  Receipt Date: 20170912
  Transmission Date: 20171128
  Serious: Yes (Other)
  Sender: FDA-Public Use
  Company Number: DE-PFIZER INC-2017385612

PATIENT
  Sex: Female
  Weight: 2.55 kg

DRUGS (3)
  1. BUPRENORPHINE. [Suspect]
     Active Substance: BUPRENORPHINE
     Indication: DRUG DEPENDENCE
     Dosage: 3 MG, 1X/DAY, GESTATIONAL WEEK 0-38.1
     Route: 064
     Dates: start: 20160707, end: 20170331
  2. FOLIO [Concomitant]
     Active Substance: FOLIC ACID
     Indication: PROPHYLAXIS OF NEURAL TUBE DEFECT
     Dosage: 0.4 MG, 1X/DAY, GESTATIONAL WEEK 6.4-38.1
     Route: 064
     Dates: start: 20160822, end: 20170331
  3. VENLAFAXINE HCL [Suspect]
     Active Substance: VENLAFAXINE HYDROCHLORIDE
     Indication: DEPRESSION
     Dosage: 85 MG, 1X/DAY, GESTATIONAL WEEK 0-38.1
     Route: 064
     Dates: start: 20160707, end: 20170331

REACTIONS (3)
  - Drug withdrawal syndrome neonatal [Recovered/Resolved]
  - Foetal exposure during pregnancy [Unknown]
  - Small for dates baby [Unknown]

NARRATIVE: CASE EVENT DATE: 20170331
